FAERS Safety Report 11544369 (Version 1)
Quarter: 2015Q3

REPORT INFORMATION
  Report Type: Spontaneous
  Country: US (occurrence: US)
  Receive Date: 20150924
  Receipt Date: 20150924
  Transmission Date: 20151125
  Serious: No
  Sender: FDA-Public Use
  Company Number: US-PFIZER INC-2015315537

PATIENT
  Age: 61 Year
  Sex: Male
  Weight: 72.56 kg

DRUGS (1)
  1. CHANTIX [Suspect]
     Active Substance: VARENICLINE TARTRATE
     Indication: SMOKING CESSATION THERAPY
     Dosage: UNK

REACTIONS (5)
  - Pre-existing condition improved [Unknown]
  - Middle insomnia [Unknown]
  - Nightmare [Unknown]
  - Inappropriate affect [Unknown]
  - Therapeutic response unexpected [Unknown]
